FAERS Safety Report 8518698-5 (Version None)
Quarter: 2012Q3

REPORT INFORMATION
  Report Type: 
  Country: None (occurrence: None)
  Receive Date: 20120718
  Receipt Date: 20110616
  Transmission Date: 20120928
  Serious: Yes (Death)
  Sender: FDA-Public Use
  Company Number: US-BRISTOL-MYERS SQUIBB COMPANY-15823081

PATIENT
  Age: 69 Year
  Sex: Female

DRUGS (4)
  1. LASIX [Concomitant]
  2. COUMADIN [Suspect]
     Indication: THROMBOSIS
  3. BLOOD PRESSURE MEDICATION [Concomitant]
     Indication: BLOOD PRESSURE
  4. COUMADIN [Suspect]
     Indication: MYOCARDIAL INFARCTION

REACTIONS (1)
  - CEREBRAL HAEMORRHAGE [None]
